FAERS Safety Report 4828442-0 (Version None)
Quarter: 2005Q4

REPORT INFORMATION
  Report Type: 
  Country: None (occurrence: None)
  Receive Date: 20051014
  Receipt Date: 20050620
  Transmission Date: 20060501
  Serious: No
  Sender: FDA-Public Use
  Company Number: 2005SP001487

PATIENT
  Age: 55 Year
  Sex: Female
  Weight: 56.6996 kg

DRUGS (10)
  1. LUNESTA [Suspect]
     Indication: INSOMNIA
     Dosage: 3 MG; HS; ORAL
     Route: 048
     Dates: start: 20050401
  2. CONCERTA [Concomitant]
  3. CYMBALTA [Concomitant]
  4. SIMVASTATIN [Concomitant]
  5. PANTOPRAZOLE [Concomitant]
  6. TOPROL-XL [Concomitant]
  7. ESTRADIOL INJ [Concomitant]
  8. SINGULAIR [Concomitant]
  9. CLONAZEPAM [Concomitant]
  10. ALPRAZOLAM [Concomitant]

REACTIONS (1)
  - WEIGHT INCREASED [None]
